FAERS Safety Report 5278257-7 (Version None)
Quarter: 2007Q1

REPORT INFORMATION
  Report Type: 
  Country: None (occurrence: None)
  Receive Date: 20070328
  Receipt Date: 20070320
  Transmission Date: 20070707
  Serious: Yes (Hospitalization)
  Sender: FDA-Public Use
  Company Number: US-JNJFOC-20070305129

PATIENT
  Sex: Female
  Weight: 74.84 kg

DRUGS (13)
  1. DURAGESIC-100 [Suspect]
     Indication: BACK PAIN
     Route: 062
  2. ZETIA [Concomitant]
     Indication: BLOOD CHOLESTEROL
     Route: 048
  3. LIPITOR [Concomitant]
     Indication: BLOOD CHOLESTEROL
     Route: 048
  4. POTASSIUM CHLORIDE [Concomitant]
     Indication: NUTRITIONAL SUPPORT
     Route: 048
  5. ASPIRIN [Concomitant]
     Indication: CARDIAC DISORDER
     Route: 048
  6. ISOSORBIDE [Concomitant]
     Indication: CARDIAC DISORDER
     Route: 048
  7. SOTALOL HYDROCHLORIDE [Concomitant]
     Indication: CARDIAC DISORDER
     Route: 048
  8. FUROSEMIDE [Concomitant]
     Indication: CARDIAC DISORDER
     Route: 048
  9. AMBIEN [Concomitant]
     Indication: SLEEP DISORDER
     Route: 048
  10. SYNTHROID [Concomitant]
     Indication: THYROID DISORDER
     Route: 048
  11. NEXIUM [Concomitant]
     Indication: GASTROINTESTINAL DISORDER
     Route: 048
  12. DIOVAN [Concomitant]
     Indication: CARDIAC DISORDER
     Route: 048
  13. PERCOCET [Concomitant]
     Indication: PAIN
     Dosage: 10/325
     Route: 048

REACTIONS (6)
  - BLISTER [None]
  - BURNING SENSATION [None]
  - CAROTID ARTERY OCCLUSION [None]
  - ERYTHEMA [None]
  - GASTRIC DISORDER [None]
  - PRURITUS [None]
